FAERS Safety Report 22638519 (Version 2)
Quarter: 2023Q2

REPORT INFORMATION
  Report Type: Spontaneous
  Country: US (occurrence: US)
  Receive Date: 20230626
  Receipt Date: 20230630
  Transmission Date: 20230722
  Serious: No
  Sender: FDA-Public Use
  Company Number: US-LUPIN PHARMACEUTICALS INC.-2023-04864

PATIENT

DRUGS (1)
  1. ALBUTEROL SULFATE [Suspect]
     Active Substance: ALBUTEROL SULFATE
     Indication: Asthma
     Dosage: UNK, 1 OR 2 PUFFS A DAY
     Dates: start: 20230605

REACTIONS (5)
  - Drug dose omission by device [Unknown]
  - Device deposit issue [Unknown]
  - Device delivery system issue [Unknown]
  - Device malfunction [Unknown]
  - No adverse event [Unknown]
